FAERS Safety Report 6822400-2 (Version None)
Quarter: 2010Q3

REPORT INFORMATION
  Report Type: 
  Country: None (occurrence: None)
  Receive Date: 20100708
  Receipt Date: 20100630
  Transmission Date: 20110219
  Serious: Yes (Life-Threatening, Hospitalization, Other)
  Sender: FDA-Public Use
  Company Number: PHFR2010GB00925

PATIENT
  Sex: Female

DRUGS (3)
  1. CLOZARIL [Suspect]
     Indication: SCHIZOPHRENIA
     Dosage: 300 MG, UNK
     Route: 048
     Dates: start: 20100517, end: 20100604
  2. AMPICILLIN SODIUM/SULBACTAM SODIUM [Concomitant]
  3. VALPROATE SODIUM [Concomitant]
     Indication: EPILEPSY
     Dosage: 750 MG, UNK

REACTIONS (8)
  - BLOOD ELECTROLYTES INCREASED [None]
  - BLOOD UREA INCREASED [None]
  - DIARRHOEA [None]
  - GASTROENTERITIS [None]
  - MALAISE [None]
  - PANCREATITIS CHRONIC [None]
  - PYREXIA [None]
  - RENAL FAILURE ACUTE [None]
